FAERS Safety Report 9538595 (Version 1)
Quarter: 2013Q3

REPORT INFORMATION
  Report Type: Spontaneous
  Country: US (occurrence: None)
  Receive Date: 20130917
  Receipt Date: 20130917
  Transmission Date: 20140515
  Serious: Yes (Other)
  Sender: FDA-Public Use
  Company Number: 2013P1019109

PATIENT
  Age: 42 Year
  Sex: Female
  Weight: 56.7 kg

DRUGS (4)
  1. OXTELLAR XR [Suspect]
     Indication: COMPLEX PARTIAL SEIZURES
     Dosage: 900-1200 MG; HS; PO
     Route: 048
     Dates: start: 20130702
  2. KEPPRA XR [Concomitant]
  3. LAMICTAL XR [Concomitant]
  4. VIMPAT [Concomitant]

REACTIONS (3)
  - Convulsion [None]
  - Unevaluable event [None]
  - Drug ineffective [None]
